FAERS Safety Report 23600362 (Version 1)
Quarter: 2024Q1

REPORT INFORMATION
  Report Type: Spontaneous
  Country: US (occurrence: US)
  Receive Date: 20240306
  Receipt Date: 20240306
  Transmission Date: 20240410
  Serious: Yes (Hospitalization, Disabling)
  Sender: FDA-Public Use
  Company Number: US-BAYER-2024A029511

PATIENT
  Age: 44 Year
  Sex: Female
  Weight: 29.48 kg

DRUGS (1)
  1. CIPROFLOXACIN [Suspect]
     Active Substance: CIPROFLOXACIN
     Dosage: UNK
     Dates: start: 202104, end: 202104

REACTIONS (3)
  - Gait inability [None]
  - Pain in extremity [None]
  - Feeding disorder [None]
